FAERS Safety Report 7756645-4 (Version None)
Quarter: 2011Q3

REPORT INFORMATION
  Report Type: 
  Country: None (occurrence: None)
  Receive Date: 20110908
  Receipt Date: 20110830
  Transmission Date: 20111222
  Serious: Yes (Other)
  Sender: FDA-Public Use
  Company Number: 2011029684

PATIENT
  Age: 32 Year
  Sex: Female

DRUGS (1)
  1. BERINERT P (COMPLEMENT C1 ESTERASE INHIBITOR) LOT# 38461711C [Suspect]
     Indication: HEREDITARY ANGIOEDEMA
     Dates: start: 20110728

REACTIONS (6)
  - PAIN IN EXTREMITY [None]
  - MALAISE [None]
  - DIZZINESS POSTURAL [None]
  - VOMITING [None]
  - HEADACHE [None]
  - ANXIETY [None]
